FAERS Safety Report 16789171 (Version 3)
Quarter: 2019Q3

REPORT INFORMATION
  Report Type: Spontaneous
  Country: CU (occurrence: CU)
  Receive Date: 20190910
  Receipt Date: 20190920
  Transmission Date: 20191005
  Serious: Yes (Other)
  Sender: FDA-Public Use
  Company Number: CU-ROCHE-2403497

PATIENT
  Age: 19 Year
  Sex: Male
  Weight: 112 kg

DRUGS (1)
  1. HEMLIBRA [Suspect]
     Active Substance: EMICIZUMAB-KXWH
     Indication: FACTOR VIII DEFICIENCY
     Dosage: 4BBOS (4 VIALS OF 30MG) EQUAL TO 120MG.
     Route: 065

REACTIONS (2)
  - Haemarthrosis [Recovered/Resolved]
  - Weight increased [Unknown]
